FAERS Safety Report 8028861-8 (Version None)
Quarter: 2012Q1

REPORT INFORMATION
  Report Type: 
  Country: None (occurrence: None)
  Receive Date: 20120106
  Receipt Date: 20120103
  Transmission Date: 20120608
  Serious: Yes (Other)
  Sender: FDA-Public Use
  Company Number: US-GLAXOSMITHKLINE-A0922141A

PATIENT
  Age: 80 Year
  Sex: Male
  Weight: 90.5 kg

DRUGS (1)
  1. AVANDIA [Suspect]
     Indication: DIABETES MELLITUS
     Dosage: 8MG PER DAY
     Route: 048
     Dates: start: 20000501, end: 20081215

REACTIONS (7)
  - MACULAR OEDEMA [None]
  - ATRIAL FIBRILLATION [None]
  - ERYTHEMA [None]
  - CARDIAC FAILURE CONGESTIVE [None]
  - VISUAL ACUITY REDUCED [None]
  - VISION BLURRED [None]
  - ARTHRALGIA [None]
